FAERS Safety Report 9686104 (Version 2)
Quarter: 2013Q4

REPORT INFORMATION
  Report Type: Spontaneous
  Country: US (occurrence: US)
  Receive Date: 20131113
  Receipt Date: 20131113
  Transmission Date: 20140711
  Serious: No
  Sender: FDA-Public Use
  Company Number: US-ALLERGAN-1214336US

PATIENT
  Age: 87 Year
  Sex: Female

DRUGS (4)
  1. COMBIGAN[R] [Suspect]
     Indication: GLAUCOMA
     Dosage: 2 GTT, QD
     Dates: start: 201209, end: 20121015
  2. COMBIGAN[R] [Suspect]
     Dosage: 2 GTT, BID
     Dates: start: 201209, end: 20121015
  3. COZAAR [Concomitant]
     Indication: HYPERTENSION
     Dosage: UNK UNK, QD
     Route: 048
     Dates: start: 2002
  4. ASA [Concomitant]
     Indication: PREVENTIVE SURGERY
     Dosage: 81 MG, QD
     Route: 048
     Dates: start: 2002

REACTIONS (3)
  - Inappropriate schedule of drug administration [Unknown]
  - Urticaria [Recovered/Resolved]
  - Dry mouth [Recovered/Resolved]
